FAERS Safety Report 8306652-8 (Version None)
Quarter: 2012Q2

REPORT INFORMATION
  Report Type: 
  Country: None (occurrence: None)
  Receive Date: 20120420
  Receipt Date: 20120409
  Transmission Date: 20120825
  Serious: Yes (Hospitalization)
  Sender: FDA-Public Use
  Company Number: USA/USA/12/0023893

PATIENT
  Age: 62 Year
  Sex: Female

DRUGS (3)
  1. METHYLPREDNISOLONE [Concomitant]
  2. TACROLIMUS [Suspect]
     Indication: IMMUNOSUPPRESSION
     Dosage: 7-8 MG/L
  3. ALEMTUZUMAB (ALEMTUZUMAB) [Concomitant]

REACTIONS (3)
  - OSMOTIC DEMYELINATION SYNDROME [None]
  - NEUROTOXICITY [None]
  - LOCKED-IN SYNDROME [None]
